FAERS Safety Report 13828755 (Version 1)
Quarter: 2017Q3

REPORT INFORMATION
  Report Type: Spontaneous
  Country: US (occurrence: US)
  Receive Date: 20170803
  Receipt Date: 20170803
  Transmission Date: 20171127
  Serious: No
  Sender: FDA-Public Use
  Company Number: US-TEVA-721604ACC

PATIENT
  Sex: Female
  Weight: 54 kg

DRUGS (1)
  1. NEXT CHOICE [Suspect]
     Active Substance: LEVONORGESTREL

REACTIONS (2)
  - Weight increased [Unknown]
  - Menstruation irregular [Unknown]
